FAERS Safety Report 4773282-4 (Version None)
Quarter: 2005Q3

REPORT INFORMATION
  Report Type: 
  Country: None (occurrence: None)
  Receive Date: 20050920
  Receipt Date: 20050907
  Transmission Date: 20060218
  Serious: Yes (Hospitalization)
  Sender: FDA-Public Use
  Company Number: DE-BOEHRINGER INGELHEIM PHARMACEUTICALS, INC.-2005-DE-03612DE

PATIENT
  Sex: Male
  Weight: 100 kg

DRUGS (1)
  1. CATAPRESAN 300 [Suspect]
     Dosage: 25 - 30 TABLETS OVER THE COURSE OF THE DAY
     Route: 048

REACTIONS (2)
  - BRADYCARDIA [None]
  - DRUG ABUSER [None]
